FAERS Safety Report 15855620 (Version 2)
Quarter: 2019Q1

REPORT INFORMATION
  Report Type: Spontaneous
  Country: BE (occurrence: BE)
  Receive Date: 20190122
  Receipt Date: 20190126
  Transmission Date: 20190417
  Serious: Yes (Other)
  Sender: FDA-Public Use
  Company Number: PHHY2019BE008301

PATIENT
  Age: 12 Year
  Sex: Female

DRUGS (1)
  1. OMEPRAZOLE. [Suspect]
     Active Substance: OMEPRAZOLE
     Indication: GASTRITIS
     Dosage: 20 MG, QD
     Route: 048

REACTIONS (9)
  - Bradyphrenia [Recovered/Resolved]
  - Acute psychosis [Recovered/Resolved]
  - Psychotic symptom [Recovered/Resolved]
  - Negative thoughts [Unknown]
  - Anxiety [Unknown]
  - Depersonalisation/derealisation disorder [Unknown]
  - Off label use [Unknown]
  - Thinking abnormal [Recovered/Resolved]
  - Feeling guilty [Unknown]
